FAERS Safety Report 6044291-2 (Version None)
Quarter: 2009Q1

REPORT INFORMATION
  Report Type: 
  Country: None (occurrence: None)
  Receive Date: 20090120
  Receipt Date: 20080508
  Transmission Date: 20090719
  Serious: No
  Sender: FDA-Public Use
  Company Number: US-BAYER-200812235BCC

PATIENT
  Age: 43 Year
  Sex: Male
  Weight: 73 kg

DRUGS (1)
  1. FINACEA [Suspect]
     Indication: ROSACEA
     Dosage: TOTAL DAILY DOSE: 15 %
     Route: 061
     Dates: start: 20080502

REACTIONS (1)
  - ROSACEA [None]
